FAERS Safety Report 8034673-1 (Version None)
Quarter: 2012Q1

REPORT INFORMATION
  Report Type: 
  Country: None (occurrence: None)
  Receive Date: 20120111
  Receipt Date: 20120105
  Transmission Date: 20120608
  Serious: Yes (Other)
  Sender: FDA-Public Use
  Company Number: DE-BRISTOL-MYERS SQUIBB COMPANY-16221129

PATIENT
  Age: 76 Year
  Sex: Female
  Weight: 60 kg

DRUGS (10)
  1. FORTECORTIN [Suspect]
     Dosage: 12 TIMES BETWEEN 12MAY11 + 28JUL11 3RD ADMIN: 31MAR11.
     Route: 042
  2. EMEND [Suspect]
     Dosage: ALSO 80MG 10MAR11, 17FEB11. 3RD ADMIN: 31MAR11.
     Route: 048
  3. ALOXI [Suspect]
     Dosage: 1DF= 1AMP IN 100 ML SODIUM CHLORIDE 0.9% 3RD ADMIN: 31MAR11.
  4. MESNA [Suspect]
     Dosage: ALSO ON 10MAR11, 31MAR11 + 21APR11. 3RD ADMIN: 31MAR11.
     Route: 048
     Dates: start: 20110217
  5. FENISTIL [Suspect]
     Dosage: 1 DF= AMPOULE. 12 TIMES BETWEEN 12MAY11 + 28JUL11
     Route: 042
  6. CYCLOPHOSPHAMIDE [Suspect]
     Dosage: 1 DF= 600MG/QM CYCLE DURN: 21 DAYS  AFTER 3 ADMIN EVENT OCCURED 3RD ADMIN: 31MAR11.
     Route: 042
  7. ZOFRAN [Suspect]
     Dosage: ON 100ML SODIUM CHLORIDE SLOUTIN 12 TIMES BETWEEN 12MAY11 + 28JUL11
     Route: 042
  8. TAXOL [Suspect]
     Indication: BREAST CANCER
     Dosage: 1 DF= 80MG/QM 12 TIMES BETWEEN 12MAY11 + 28JUL11.
  9. EPIRUBICIN [Suspect]
     Dosage: 90 MG/QM BSA CYCLE DURN: 21 DAYS AFTER 3 ADMIN EVENT OCCURED ALSO 972MG 3RD ADMIN: 31MAR11.
     Route: 042
  10. RANITIDINE [Suspect]
     Dosage: 1 DF= 1 AMPOULE 12 TIMES BETWEEN 12MAY11 + 28JUL11
     Route: 042

REACTIONS (9)
  - POLLAKIURIA [None]
  - WEIGHT DECREASED [None]
  - POLYNEUROPATHY [None]
  - MUSCLE SPASMS [None]
  - DRY MOUTH [None]
  - SKIN STRIAE [None]
  - PALMAR-PLANTAR ERYTHRODYSAESTHESIA SYNDROME [None]
  - ONYCHOCLASIS [None]
  - DYSGEUSIA [None]
